FAERS Safety Report 4987441-9 (Version None)
Quarter: 2006Q2

REPORT INFORMATION
  Report Type: 
  Country: None (occurrence: None)
  Receive Date: 20060424
  Receipt Date: 20060411
  Transmission Date: 20061013
  Serious: Yes (Other)
  Sender: FDA-Public Use
  Company Number: 26641

PATIENT
  Sex: Female
  Weight: 75.2971 kg

DRUGS (2)
  1. CISPLATIN [Suspect]
     Indication: OVARIAN CANCER
     Dosage: 40MG/M2 DAILY X5
     Dates: start: 20060327
  2. ETOPOSIDE [Suspect]
     Indication: OVARIAN CANCER
     Dosage: 100MG/M2 DAILY X 5 DAYS; 30 U
     Dates: start: 20060327

REACTIONS (2)
  - HAEMATOMA [None]
  - VISUAL DISTURBANCE [None]
